FAERS Safety Report 8103910-7 (Version None)
Quarter: 2012Q1

REPORT INFORMATION
  Report Type: 
  Country: None (occurrence: None)
  Receive Date: 20120201
  Receipt Date: 20120124
  Transmission Date: 20120608
  Serious: Yes (Other)
  Sender: FDA-Public Use
  Company Number: PHEH2012US002104

PATIENT
  Sex: Female

DRUGS (4)
  1. BUSPAR [Concomitant]
     Dosage: 1 DF, PER DAY
  2. LOTREL [Suspect]
     Dosage: 1 DF, A DAY
  3. CITALOPRAM HYDROBROMIDE [Concomitant]
     Dosage: 1 DF, A DAY
  4. AGGRENOX [Concomitant]
     Dosage: 2 DF, UNK

REACTIONS (3)
  - FALL [None]
  - HIP FRACTURE [None]
  - BEDRIDDEN [None]
